FAERS Safety Report 21959264 (Version 1)
Quarter: 2023Q1

REPORT INFORMATION
  Report Type: Spontaneous
  Country: GB (occurrence: GB)
  Receive Date: 20230206
  Receipt Date: 20230206
  Transmission Date: 20230417
  Serious: Yes (Life-Threatening, Hospitalization, Other)
  Sender: FDA-Public Use
  Company Number: GB-MHRA-MED-202301311615182890-ZMFDS

PATIENT
  Age: 66 Year
  Sex: Male
  Weight: 78 kg

DRUGS (1)
  1. CRIZOTINIB [Suspect]
     Active Substance: CRIZOTINIB
     Indication: Non-small cell lung cancer
     Dosage: UNK
     Dates: start: 20220801, end: 20230108

REACTIONS (9)
  - Pseudomonas infection [Recovered/Resolved with Sequelae]
  - Oesophageal candidiasis [Not Recovered/Not Resolved]
  - Pulmonary embolism [Unknown]
  - Pneumonia [Unknown]
  - Septic shock [Recovered/Resolved]
  - Respiratory arrest [Recovering/Resolving]
  - Hypoalbuminaemia [Recovering/Resolving]
  - Candida infection [Recovering/Resolving]
  - Herpes simplex [Recovering/Resolving]

NARRATIVE: CASE EVENT DATE: 20230108
